FAERS Safety Report 9693112 (Version 2)
Quarter: 2013Q4

REPORT INFORMATION
  Report Type: Spontaneous
  Country: CO (occurrence: CO)
  Receive Date: 20131118
  Receipt Date: 20131118
  Transmission Date: 20140711
  Serious: Yes (Death)
  Sender: FDA-Public Use
  Company Number: CO-UCBSA-068827

PATIENT
  Age: 78 Year
  Sex: Female

DRUGS (6)
  1. ROTIGOTINE [Suspect]
     Indication: PARKINSON^S DISEASE
     Dosage: DAILY DOSE : 4 MG
     Route: 062
     Dates: start: 20120528, end: 20130830
  2. ERTAPENIM [Concomitant]
     Dosage: 1 MG / 24 HOUR
  3. ACETAMINOPHEN [Concomitant]
     Dosage: 500 MG
  4. METROTEXATE [Concomitant]
  5. OMEPRAZOLE [Concomitant]
  6. ACIDOFOLICO [Concomitant]

REACTIONS (4)
  - Pulmonary thrombosis [Fatal]
  - Application site rash [Recovered/Resolved]
  - Pyrexia [Unknown]
  - Urinary tract infection [Unknown]
